FAERS Safety Report 5200177-4 (Version None)
Quarter: 2007Q1

REPORT INFORMATION
  Report Type: 
  Country: None (occurrence: None)
  Receive Date: 20070103
  Receipt Date: 20061227
  Transmission Date: 20070707
  Serious: No
  Sender: FDA-Public Use
  Company Number: MC200600913

PATIENT
  Age: 84 Year
  Sex: Male
  Weight: 79 kg

DRUGS (13)
  1. ANGIOMAX [Suspect]
     Indication: PERCUTANEOUS CORONARY INTERVENTION
     Dosage: SEE IMAGE
     Route: 040
     Dates: start: 20061215, end: 20061215
  2. OCUVITE /01053801/ (ASCORBIC ACID, RETINOL, TOCOPHEROL) TABLET [Concomitant]
  3. ASA (ACETYSALICYLIC ACID) [Concomitant]
  4. VITAMIN E  /00110501/ (TOCOPHEROL) [Concomitant]
  5. VITAMIN C  /0008001/ (ASCORBIC ACID) [Concomitant]
  6. LEVOTHYROXINE SODIUM [Concomitant]
  7. NAPROSYN /00256101/ (NAPROXEN) [Concomitant]
  8. LUMIGAN (BIMATOPROST) DROP [Concomitant]
  9. TIMOLOL (TIMOLOL) DROP [Concomitant]
  10. HYDROCHLOROTHIAZIDE [Concomitant]
  11. NORVASC  /00972491/ (ALMODIPINE) [Concomitant]
  12. LIPITOR [Concomitant]
  13. VISIPAQUE  /01044301/ (IODIXANOL) [Concomitant]

REACTIONS (4)
  - BRADYCARDIA [None]
  - HYPOTENSION [None]
  - PRURITUS [None]
  - SKIN BURNING SENSATION [None]
